FAERS Safety Report 6338142-6 (Version None)
Quarter: 2009Q3

REPORT INFORMATION
  Report Type: 
  Country: None (occurrence: None)
  Receive Date: 20090902
  Receipt Date: 20090821
  Transmission Date: 20100115
  Serious: Yes (Hospitalization)
  Sender: FDA-Public Use
  Company Number: CA-PFIZER INC-2006096791

PATIENT
  Age: 75 Year

DRUGS (3)
  1. SUNITINIB MALATE [Suspect]
     Indication: METASTATIC RENAL CELL CARCINOMA
     Dosage: 37.5 MG, 1X/DAY
     Route: 048
     Dates: start: 20051114, end: 20060802
  2. SENOKOT [Concomitant]
     Route: 048
     Dates: start: 20060525
  3. HYDROMORPHONE HCL [Concomitant]
     Route: 048
     Dates: start: 20060524

REACTIONS (1)
  - CEREBROVASCULAR ACCIDENT [None]
